FAERS Safety Report 23170271 (Version 1)
Quarter: 2023Q4

REPORT INFORMATION
  Report Type: Spontaneous
  Country: ES (occurrence: ES)
  Receive Date: 20231110
  Receipt Date: 20231110
  Transmission Date: 20240110
  Serious: Yes (Other)
  Sender: FDA-Public Use
  Company Number: None

PATIENT
  Sex: Male

DRUGS (1)
  1. FINASTERIDE [Suspect]
     Active Substance: FINASTERIDE
     Indication: Alopecia
     Dosage: 1-3 MONATE
     Dates: start: 2016

REACTIONS (40)
  - Anxiety [Not Recovered/Not Resolved]
  - Suicidal ideation [Not Recovered/Not Resolved]
  - Muscle atrophy [Not Recovered/Not Resolved]
  - Bradyphrenia [Not Recovered/Not Resolved]
  - Arthralgia [Not Recovered/Not Resolved]
  - Head discomfort [Not Recovered/Not Resolved]
  - Anhedonia [Not Recovered/Not Resolved]
  - Eczema [Not Recovered/Not Resolved]
  - Joint laxity [Not Recovered/Not Resolved]
  - Dysbiosis [Not Recovered/Not Resolved]
  - Dyspepsia [Not Recovered/Not Resolved]
  - Fatigue [Not Recovered/Not Resolved]
  - Osteoporosis [Not Recovered/Not Resolved]
  - Erectile dysfunction [Not Recovered/Not Resolved]
  - Ear discomfort [Not Recovered/Not Resolved]
  - Muscular weakness [Not Recovered/Not Resolved]
  - Thirst [Recovering/Resolving]
  - Dehydration [Recovering/Resolving]
  - Cognitive disorder [Not Recovered/Not Resolved]
  - Irritability [Not Recovered/Not Resolved]
  - Amnesia [Not Recovered/Not Resolved]
  - Food intolerance [Not Recovered/Not Resolved]
  - Urinary incontinence [Not Recovered/Not Resolved]
  - Bladder dysfunction [Not Recovered/Not Resolved]
  - Dry skin [Recovering/Resolving]
  - Defaecation urgency [Not Recovered/Not Resolved]
  - Tinnitus [Not Recovered/Not Resolved]
  - Panic attack [Not Recovered/Not Resolved]
  - Muscle spasms [Not Recovered/Not Resolved]
  - Product communication issue [Not Recovered/Not Resolved]
  - Loss of libido [Not Recovered/Not Resolved]
  - Lacrimation decreased [Not Recovered/Not Resolved]
  - Brain fog [Not Recovered/Not Resolved]
  - Insomnia [Not Recovered/Not Resolved]
  - Pollakiuria [Not Recovered/Not Resolved]
  - Quality of life decreased [Unknown]
  - Prostatic calcification [Not Recovered/Not Resolved]
  - Arthropathy [Not Recovered/Not Resolved]
  - Dry eye [Not Recovered/Not Resolved]
  - Calcinosis [Not Recovered/Not Resolved]
